FAERS Safety Report 15504388 (Version 2)
Quarter: 2018Q4

REPORT INFORMATION
  Report Type: Report from Study
  Country: FR (occurrence: FR)
  Receive Date: 20181016
  Receipt Date: 20181208
  Transmission Date: 20190205
  Serious: Yes (Hospitalization)
  Sender: FDA-Public Use
  Company Number: FR-ROCHE-2193688

PATIENT
  Age: 69 Year
  Sex: Female

DRUGS (15)
  1. TRASTUZUMAB. [Suspect]
     Active Substance: TRASTUZUMAB
     Dosage: MAINTENANCE DOSE?(290-324 MG)
     Route: 042
     Dates: end: 20170612
  2. TRAMADOL. [Concomitant]
     Active Substance: TRAMADOL
     Route: 048
     Dates: start: 20180920, end: 20181002
  3. OMEPRAZOL [Concomitant]
     Active Substance: OMEPRAZOLE
     Route: 048
     Dates: start: 20181003, end: 20181018
  4. VINORELBINE [Suspect]
     Active Substance: VINORELBINE\VINORELBINE TARTRATE
     Dosage: ROUTE AND FREQUENCY AS PER PROTOCOL?DOSE: 36MG-46.2 MG
     Route: 042
     Dates: end: 20151125
  5. TRASTUZUMAB EMTANSINE [Suspect]
     Active Substance: ADO-TRASTUZUMAB EMTANSINE
     Indication: HER-2 POSITIVE BREAST CANCER
     Dosage: DOSE: 184 MG?FREQUENCY AS PER PROTOCOL?DATE OF LAST DOSE PRIOR TO SAE: 17/SEP/2018
     Route: 042
     Dates: start: 20170706, end: 20180918
  6. LIPANTHYL [Concomitant]
     Active Substance: FENOFIBRATE
     Route: 048
     Dates: start: 20170930
  7. ENOXAPARIN SODIUM. [Concomitant]
     Active Substance: ENOXAPARIN SODIUM
     Route: 058
     Dates: start: 20180925, end: 20181117
  8. VINORELBINE [Suspect]
     Active Substance: VINORELBINE\VINORELBINE TARTRATE
     Indication: HER-2 POSITIVE BREAST CANCER
     Dosage: DOSE: FIRST ADMINISTRATION AS PER PROTOCOL?ROUTE AND FREQUENCY AS PER PROTOCOL
     Route: 042
     Dates: start: 20150715
  9. PERTUZUMAB. [Suspect]
     Active Substance: PERTUZUMAB
     Indication: HER-2 POSITIVE BREAST CANCER
     Dosage: LOADING DOSE
     Route: 042
     Dates: start: 20150715
  10. PERTUZUMAB. [Suspect]
     Active Substance: PERTUZUMAB
     Dosage: MAINTENANCE DOSE
     Route: 042
     Dates: end: 20170612
  11. KETOPROFENE LP [Concomitant]
     Route: 048
     Dates: start: 20181003, end: 20181018
  12. ZOFRAN [Concomitant]
     Active Substance: ONDANSETRON HYDROCHLORIDE
     Route: 042
     Dates: start: 20180917, end: 20180917
  13. TRASTUZUMAB. [Suspect]
     Active Substance: TRASTUZUMAB
     Indication: HER-2 POSITIVE BREAST CANCER
     Dosage: LOADING DOSE
     Route: 042
     Dates: start: 20150715
  14. PARACETAMOL [Concomitant]
     Active Substance: ACETAMINOPHEN
     Route: 048
     Dates: start: 20180920
  15. PARACETAMOL [Concomitant]
     Active Substance: ACETAMINOPHEN
     Route: 042
     Dates: start: 20180917, end: 20180917

REACTIONS (1)
  - Fracture [Recovered/Resolved with Sequelae]

NARRATIVE: CASE EVENT DATE: 20180919
